FAERS Safety Report 4885241-1 (Version None)
Quarter: 2005Q4

REPORT INFORMATION
  Report Type: 
  Country: None (occurrence: None)
  Receive Date: 20051214
  Receipt Date: 20050413
  Transmission Date: 20060501
  Serious: No
  Sender: FDA-Public Use
  Company Number: RS005126-USA

PATIENT
  Sex: Female

DRUGS (1)
  1. ACIPHEX [Suspect]
     Dosage: ORAL
     Route: 048

REACTIONS (1)
  - ANAPHYLACTIC REACTION [None]
